FAERS Safety Report 5341570-9 (Version None)
Quarter: 2007Q2

REPORT INFORMATION
  Report Type: 
  Country: None (occurrence: None)
  Receive Date: 20070601
  Receipt Date: 20070524
  Transmission Date: 20071010
  Serious: Yes (Hospitalization)
  Sender: FDA-Public Use
  Company Number: FR-JNJFOC-20070506094

PATIENT
  Age: 74 Year
  Sex: Male

DRUGS (6)
  1. DURAGESIC-100 [Suspect]
     Indication: PAIN
     Route: 062
  2. DIANTALVIC [Suspect]
     Indication: DRUG USE FOR UNKNOWN INDICATION
     Route: 048
  3. LAROXYL [Concomitant]
     Route: 065
  4. RIVOTRIL [Concomitant]
     Route: 065
  5. PREVISCAN [Concomitant]
     Route: 065
  6. ALLOPURINOL [Concomitant]
     Route: 065

REACTIONS (3)
  - MALAISE [None]
  - MULTIPLE DRUG OVERDOSE [None]
  - TRANSIENT ISCHAEMIC ATTACK [None]
